FAERS Safety Report 7083148-5 (Version None)
Quarter: 2010Q4

REPORT INFORMATION
  Report Type: 
  Country: None (occurrence: None)
  Receive Date: 20101104
  Receipt Date: 20101026
  Transmission Date: 20110411
  Serious: Yes (Hospitalization)
  Sender: FDA-Public Use
  Company Number: AU-NAPPMUNDI-USA-2010-0051052

PATIENT
  Age: 95 Year
  Sex: Female

DRUGS (1)
  1. NORSPAN (NDA 21-306) [Suspect]
     Indication: PRODUCT USED FOR UNKNOWN INDICATION
     Dosage: 10 MCG, Q1H

REACTIONS (3)
  - ANTIDIURETIC HORMONE ABNORMALITY [None]
  - HYPONATRAEMIA [None]
  - PNEUMONIA [None]
